FAERS Safety Report 5158112-3 (Version None)
Quarter: 2006Q4

REPORT INFORMATION
  Report Type: 
  Country: None (occurrence: None)
  Receive Date: 20061127
  Receipt Date: 20061120
  Transmission Date: 20070319
  Serious: Yes (Hospitalization)
  Sender: FDA-Public Use
  Company Number: FR-MERCK-0611FRA00056

PATIENT
  Age: 76 Year
  Sex: Male

DRUGS (12)
  1. COZAAR [Suspect]
     Indication: ISCHAEMIC CARDIOMYOPATHY
     Route: 048
  2. VERAPAMIL HYDROCHLORIDE [Suspect]
     Indication: ISCHAEMIC CARDIOMYOPATHY
     Route: 048
     Dates: end: 20060421
  3. AMITRIPTYLINE HYDROCHLORIDE [Suspect]
     Indication: DEPRESSION
     Route: 048
     Dates: end: 20060421
  4. AMITRIPTYLINE HYDROCHLORIDE [Suspect]
     Route: 048
     Dates: start: 20060422
  5. RABEPRAZOLE SODIUM [Concomitant]
     Route: 048
  6. SIMVASTATIN [Concomitant]
     Indication: HYPERCHOLESTEROLAEMIA
     Route: 048
  7. ASPIRIN [Concomitant]
     Indication: ISCHAEMIC CARDIOMYOPATHY
     Route: 048
  8. AMLODIPINE BESYLATE [Concomitant]
     Indication: ISCHAEMIC CARDIOMYOPATHY
     Route: 048
     Dates: start: 20060422
  9. INSULIN [Concomitant]
     Indication: DIABETES MELLITUS
     Route: 058
  10. HYDROXYZINE HYDROCHLORIDE [Concomitant]
     Route: 048
  11. FLUTICASONE PROPIONATE AND SALMETEROL XINAFOATE [Concomitant]
     Indication: ASTHMA
  12. ALBUTEROL SULFATE AND IPRATROPIUM BROMIDE [Concomitant]
     Indication: ASTHMA

REACTIONS (4)
  - DRUG INTERACTION [None]
  - MALAISE [None]
  - ORTHOSTATIC HYPOTENSION [None]
  - VERTIGO [None]
